FAERS Safety Report 8179342-2 (Version None)
Quarter: 2012Q1

REPORT INFORMATION
  Report Type: 
  Country: None (occurrence: None)
  Receive Date: 20120302
  Receipt Date: 20120222
  Transmission Date: 20120608
  Serious: Yes (Other)
  Sender: FDA-Public Use
  Company Number: JP-JNJFOC-20120205572

PATIENT
  Age: 56 Year
  Sex: Female

DRUGS (4)
  1. INFLIXIMAB, RECOMBINANT [Suspect]
     Indication: RHEUMATOID ARTHRITIS
     Route: 042
  2. ADALIMUMAB [Suspect]
     Indication: RHEUMATOID ARTHRITIS
  3. METHOTREXATE [Suspect]
     Indication: RHEUMATOID ARTHRITIS
     Route: 065
  4. METHYLPREDNISOLONE [Suspect]
     Indication: RHEUMATOID ARTHRITIS
     Dosage: DOSE REPORTRED AS 2- 6 MG/DAY

REACTIONS (1)
  - SECONDARY SYPHILIS [None]
